FAERS Safety Report 4375175-3 (Version None)
Quarter: 2004Q2

REPORT INFORMATION
  Report Type: 
  Country: None (occurrence: None)
  Receive Date: 20040607
  Receipt Date: 20040115
  Transmission Date: 20050107
  Serious: Yes (Other)
  Sender: FDA-Public Use
  Company Number: 336293

PATIENT
  Sex: Female
  Weight: 3.1 kg

DRUGS (3)
  1. ACCUTANE [Suspect]
     Indication: ACNE CYSTIC
     Dosage: 20 MG ORAL
     Route: 048
     Dates: start: 19980615, end: 20030322
  2. ORTHO TRI-CYCLEN [Concomitant]
  3. WELLBUTRIN [Concomitant]

REACTIONS (2)
  - LIVE BIRTH [None]
  - NO ADVERSE EFFECT [None]
